FAERS Safety Report 17389495 (Version 1)
Quarter: 2020Q1

REPORT INFORMATION
  Report Type: Report from Study
  Country: GB (occurrence: GB)
  Receive Date: 20200207
  Receipt Date: 20200207
  Transmission Date: 20200409
  Serious: Yes (Other)
  Sender: FDA-Public Use
  Company Number: GB-EMD SERONO-9051830

PATIENT
  Age: 62 Year
  Sex: Male

DRUGS (3)
  1. IBUPROFEN. [Concomitant]
     Active Substance: IBUPROFEN
     Indication: PRODUCT USED FOR UNKNOWN INDICATION
  2. REBIF [Suspect]
     Active Substance: INTERFERON BETA-1A
     Indication: MULTIPLE SCLEROSIS
     Dosage: 6MIU, PRE-FILLED SYRINGE
     Route: 058
     Dates: start: 200604
  3. REBIF [Suspect]
     Active Substance: INTERFERON BETA-1A
     Dosage: PRE-FILLED SYRINGE
     Route: 058
     Dates: start: 20070531

REACTIONS (10)
  - Back disorder [Unknown]
  - Gait disturbance [Unknown]
  - Product dose omission [Not Recovered/Not Resolved]
  - Multiple sclerosis relapse [Unknown]
  - Headache [Not Recovered/Not Resolved]
  - Fatigue [Unknown]
  - Depressed mood [Unknown]
  - Malaise [Not Recovered/Not Resolved]
  - Lower respiratory tract infection [Recovering/Resolving]
  - Dyspnoea [Recovering/Resolving]

NARRATIVE: CASE EVENT DATE: 201903
